FAERS Safety Report 5759270-X (Version None)
Quarter: 2008Q2

REPORT INFORMATION
  Report Type: 
  Country: None (occurrence: None)
  Receive Date: 20080604
  Receipt Date: 20080528
  Transmission Date: 20081010
  Serious: Yes (Hospitalization)
  Sender: FDA-Public Use
  Company Number: US-MERCK-0705USA05362

PATIENT
  Sex: Female

DRUGS (1)
  1. FOSAMAX [Suspect]
     Indication: OSTEOPOROSIS
     Route: 048
     Dates: start: 20030101, end: 20060101

REACTIONS (9)
  - BLOOD DISORDER [None]
  - CARDIAC DISORDER [None]
  - DENTAL CARIES [None]
  - HEART RATE IRREGULAR [None]
  - JAW DISORDER [None]
  - JOINT INJURY [None]
  - ORAL INFECTION [None]
  - TOOTH FRACTURE [None]
  - TRISMUS [None]
